FAERS Safety Report 8594477-8 (Version None)
Quarter: 2012Q3

REPORT INFORMATION
  Report Type: 
  Country: None (occurrence: None)
  Receive Date: 20120801
  Receipt Date: 20120717
  Transmission Date: 20120928
  Serious: Yes (Death)
  Sender: FDA-Public Use
  Company Number: FK201202063

PATIENT

DRUGS (3)
  1. CISPLATIN [Suspect]
     Indication: OESOPHAGEAL CARCINOMA
  2. CETUXIMAB (CETUXIMAB) [Suspect]
     Indication: OESOPHAGEAL CARCINOMA
  3. IRINOTECAN HCL [Suspect]
     Indication: OESOPHAGEAL CARCINOMA

REACTIONS (2)
  - SEPSIS [None]
  - NEUTROPENIA [None]
